FAERS Safety Report 10262855 (Version 2)
Quarter: 2014Q2

REPORT INFORMATION
  Report Type: Report from Study
  Country: US (occurrence: US)
  Receive Date: 20140626
  Receipt Date: 20140626
  Transmission Date: 20141212
  Serious: Yes (Other)
  Sender: FDA-Public Use
  Company Number: US-MYLANLABS-2013S1019891

PATIENT
  Age: 22 Year
  Sex: Male
  Weight: 81.65 kg

DRUGS (5)
  1. CLOZAPINE TABLETS [Suspect]
     Indication: SCHIZOAFFECTIVE DISORDER
     Dates: end: 2013
  2. CLOZAPINE TABLETS [Suspect]
     Indication: SCHIZOAFFECTIVE DISORDER
     Route: 048
     Dates: start: 20130514, end: 20130830
  3. SEROQUEL [Concomitant]
     Dosage: XR
  4. COGENTIN [Concomitant]
  5. RISPERDAL CONSTA [Concomitant]
     Route: 030

REACTIONS (1)
  - Granulocytopenia [Recovered/Resolved]
